FAERS Safety Report 5721388-5 (Version None)
Quarter: 2008Q2

REPORT INFORMATION
  Report Type: 
  Country: None (occurrence: None)
  Receive Date: 20080428
  Receipt Date: 20080428
  Transmission Date: 20081010
  Serious: Yes (Hospitalization)
  Sender: FDA-Public Use
  Company Number: None

PATIENT
  Age: 46 Year
  Sex: Male

DRUGS (1)
  1. CLOZAPINE [Suspect]
     Indication: SCHIZOPHRENIA
     Dosage: 450MG DAILY PO
     Route: 048

REACTIONS (3)
  - HYPERTENSION [None]
  - RHABDOMYOLYSIS [None]
  - VISUAL DISTURBANCE [None]
